FAERS Safety Report 22251701 (Version 2)
Quarter: 2023Q2

REPORT INFORMATION
  Report Type: Report from Study
  Country: PE (occurrence: PE)
  Receive Date: 20230425
  Receipt Date: 20230516
  Transmission Date: 20230722
  Serious: Yes (Other)
  Sender: FDA-Public Use
  Company Number: PE-BAYER-2023A049092

PATIENT
  Age: 52 Year
  Sex: Female

DRUGS (2)
  1. STIVARGA [Suspect]
     Active Substance: REGORAFENIB
     Indication: Hepatocellular carcinoma
     Dosage: DAILY DOSE 160 MG
     Route: 048
     Dates: start: 20230323, end: 20230412
  2. STIVARGA [Suspect]
     Active Substance: REGORAFENIB
     Indication: Hepatocellular carcinoma
     Dosage: 120 MG DAILY (80 MG IN THE MORNING AND 40 MG AT NIGHT DAILY)
     Route: 048

REACTIONS (8)
  - Dialysis [Unknown]
  - Disorientation [Recovering/Resolving]
  - Incoherent [Recovering/Resolving]
  - Hypersomnia [None]
  - Somnolence [None]
  - Eye disorder [None]
  - Somnolence [Recovering/Resolving]
  - Drug ineffective [Not Recovered/Not Resolved]

NARRATIVE: CASE EVENT DATE: 20230401
